FAERS Safety Report 6312313-7 (Version None)
Quarter: 2009Q3

REPORT INFORMATION
  Report Type: 
  Country: None (occurrence: None)
  Receive Date: 20090817
  Receipt Date: 20090812
  Transmission Date: 20100115
  Serious: Yes (Life-Threatening, Hospitalization)
  Sender: FDA-Public Use
  Company Number: US-ASTRAZENECA-2009SE07876

PATIENT
  Age: 13 Year
  Sex: Female

DRUGS (5)
  1. LISINOPRIL [Suspect]
     Route: 048
  2. NICORANDIL [Suspect]
     Route: 048
  3. METOCLOPRAMIDE [Suspect]
     Route: 048
  4. PARACETAMOL [Concomitant]
  5. SALICYLATE [Concomitant]

REACTIONS (5)
  - BACK PAIN [None]
  - ELECTROCARDIOGRAM CHANGE [None]
  - HYPOTENSION [None]
  - INTENTIONAL OVERDOSE [None]
  - SUICIDE ATTEMPT [None]
